FAERS Safety Report 16047689 (Version 1)
Quarter: 2019Q1

REPORT INFORMATION
  Report Type: Spontaneous
  Country: DE (occurrence: DE)
  Receive Date: 20190307
  Receipt Date: 20190307
  Transmission Date: 20190418
  Serious: Yes (Other)
  Sender: FDA-Public Use
  Company Number: DE-PFIZER INC-2019098065

PATIENT

DRUGS (10)
  1. PHENYTOIN. [Concomitant]
     Active Substance: PHENYTOIN
     Dosage: UNK
  2. VIGABATRIN. [Concomitant]
     Active Substance: VIGABATRIN
     Dosage: UNK
  3. SULTHIAME [Concomitant]
     Active Substance: SULTHIAME
     Dosage: UNK
  4. VALPROIC ACID. [Concomitant]
     Active Substance: VALPROIC ACID
     Dosage: UNK
  5. OXCARBAZEPINE. [Concomitant]
     Active Substance: OXCARBAZEPINE
     Dosage: UNK
  6. DIAZEPAM. [Concomitant]
     Active Substance: DIAZEPAM
     Dosage: UNK
  7. LEVETIRACETAM. [Suspect]
     Active Substance: LEVETIRACETAM
     Dosage: UNK
  8. CARBAMAZEPINE. [Concomitant]
     Active Substance: CARBAMAZEPINE
     Dosage: UNK
  9. ZONISAMIDE. [Concomitant]
     Active Substance: ZONISAMIDE
     Dosage: UNK
  10. LAMOTRIGINE. [Concomitant]
     Active Substance: LAMOTRIGINE
     Dosage: UNK

REACTIONS (1)
  - Tonic convulsion [Unknown]
